FAERS Safety Report 15127141 (Version 5)
Quarter: 2019Q4

REPORT INFORMATION
  Report Type: Report from Study
  Country: KR (occurrence: KR)
  Receive Date: 20180710
  Receipt Date: 20191120
  Transmission Date: 20200122
  Serious: Yes (Hospitalization)
  Sender: FDA-Public Use
  Company Number: KR-ASTRAZENECA-2018SE88056

PATIENT
  Age: 27575 Day
  Sex: Female

DRUGS (8)
  1. PIDOGRIN [Concomitant]
     Indication: HEAD TITUBATION
     Route: 048
  2. AZD6094 [Suspect]
     Active Substance: SAVOLITINIB
     Indication: NON-SMALL CELL LUNG CANCER
     Route: 048
     Dates: start: 20180620, end: 20180708
  3. AMLODIPINE [Concomitant]
     Active Substance: AMLODIPINE BESYLATE
     Indication: HYPERTENSION
     Route: 048
  4. AXATIDINE [Concomitant]
     Indication: GASTRIC PH DECREASED
     Route: 048
  5. TAGRISSO [Suspect]
     Active Substance: OSIMERTINIB
     Indication: NON-SMALL CELL LUNG CANCER
     Route: 048
     Dates: start: 20180620
  6. ITOMED [Concomitant]
     Indication: DYSPEPSIA
     Route: 048
  7. K-CETIL [Concomitant]
     Indication: HEAD TITUBATION
     Route: 048
  8. BEECOM [Concomitant]
     Indication: VITAMIN SUPPLEMENTATION
     Route: 048

REACTIONS (1)
  - Neutrophil count decreased [Recovered/Resolved]

NARRATIVE: CASE EVENT DATE: 20180701
